FAERS Safety Report 22081145 (Version 2)
Quarter: 2023Q2

REPORT INFORMATION
  Report Type: Spontaneous
  Country: US (occurrence: US)
  Receive Date: 20230309
  Receipt Date: 20230413
  Transmission Date: 20230722
  Serious: Yes (Other)
  Sender: FDA-Public Use
  Company Number: US-BEH-2023156087

PATIENT
  Age: 23 Year
  Sex: Male

DRUGS (10)
  1. IDELVION [Suspect]
     Active Substance: COAGULATION FACTOR IX RECOMBINANT HUMAN
     Indication: Factor IX deficiency
     Dosage: 5000 INTERNATIONAL UNIT, QW
     Route: 042
     Dates: start: 202111
  2. IDELVION [Suspect]
     Active Substance: COAGULATION FACTOR IX RECOMBINANT HUMAN
     Indication: Factor IX deficiency
     Dosage: 5000 INTERNATIONAL UNIT, QW
     Route: 042
     Dates: start: 202111
  3. IDELVION [Suspect]
     Active Substance: COAGULATION FACTOR IX RECOMBINANT HUMAN
     Indication: Haemorrhage
     Dosage: 5000 INTERNATIONAL UNIT, PRN
     Route: 042
     Dates: start: 202111
  4. IDELVION [Suspect]
     Active Substance: COAGULATION FACTOR IX RECOMBINANT HUMAN
     Indication: Haemorrhage
     Dosage: 5000 INTERNATIONAL UNIT, PRN
     Route: 042
     Dates: start: 202111
  5. IDELVION [Suspect]
     Active Substance: COAGULATION FACTOR IX RECOMBINANT HUMAN
     Dosage: 5000 INTERNATIONAL UNIT, BIW
     Route: 042
     Dates: start: 202302
  6. IDELVION [Suspect]
     Active Substance: COAGULATION FACTOR IX RECOMBINANT HUMAN
     Dosage: 5000 INTERNATIONAL UNIT, BIW
     Route: 042
     Dates: start: 202302
  7. IDELVION [Suspect]
     Active Substance: COAGULATION FACTOR IX RECOMBINANT HUMAN
     Dosage: 5000 INTERNATIONAL UNIT, QW
     Route: 042
     Dates: start: 20230104
  8. IDELVION [Suspect]
     Active Substance: COAGULATION FACTOR IX RECOMBINANT HUMAN
     Dosage: 5000 INTERNATIONAL UNIT, QW
     Route: 042
     Dates: start: 20230104
  9. IDELVION [Suspect]
     Active Substance: COAGULATION FACTOR IX RECOMBINANT HUMAN
     Dosage: 1 DOSAGE FORM, PRN
     Route: 065
     Dates: start: 20230320
  10. IDELVION [Suspect]
     Active Substance: COAGULATION FACTOR IX RECOMBINANT HUMAN
     Dosage: 1 DOSAGE FORM, PRN
     Route: 065
     Dates: start: 20230320

REACTIONS (3)
  - Ligament sprain [Unknown]
  - Traumatic haemorrhage [Recovered/Resolved]
  - Haemarthrosis [Recovered/Resolved]

NARRATIVE: CASE EVENT DATE: 20230201
